FAERS Safety Report 16827327 (Version 1)
Quarter: 2019Q3

REPORT INFORMATION
  Report Type: Spontaneous
  Country: US (occurrence: US)
  Receive Date: 20190919
  Receipt Date: 20190919
  Transmission Date: 20191005
  Serious: No
  Sender: FDA-Public Use
  Company Number: US-NVP-000023

PATIENT

DRUGS (1)
  1. THIOTHIXENE. [Suspect]
     Active Substance: THIOTHIXENE
     Indication: PRODUCT USED FOR UNKNOWN INDICATION
     Route: 065

REACTIONS (4)
  - Depression [Unknown]
  - Headache [Unknown]
  - Insomnia [Unknown]
  - Fatigue [Unknown]
